FAERS Safety Report 12429832 (Version 1)
Quarter: 2016Q2

REPORT INFORMATION
  Report Type: Spontaneous
  Country: US (occurrence: US)
  Receive Date: 20160602
  Receipt Date: 20160602
  Transmission Date: 20160815
  Serious: Yes (Disabling, Other)
  Sender: FDA-Public Use
  Company Number: US-FRESENIUS KABI-FK201603176

PATIENT
  Age: 3 Year
  Sex: Male

DRUGS (34)
  1. CYTARABINE (MANUFACTURER UNKNOWN) [Suspect]
     Active Substance: CYTARABINE
     Indication: ACUTE MYELOID LEUKAEMIA RECURRENT
     Route: 065
     Dates: start: 20160221, end: 20160225
  2. GENTAK [Concomitant]
     Active Substance: GENTAMICIN SULFATE
     Dates: start: 20160305, end: 20160305
  3. ZOFRAN [Concomitant]
     Active Substance: ONDANSETRON HYDROCHLORIDE
     Dates: start: 20160221
  4. ZOFRAN [Concomitant]
     Active Substance: ONDANSETRON HYDROCHLORIDE
     Dates: start: 20160301, end: 20160301
  5. CHOLINE MAGNESIUM SALICYLATE [Concomitant]
     Dates: start: 20160311, end: 20160311
  6. CANCIDAS [Concomitant]
     Active Substance: CASPOFUNGIN ACETATE
     Dates: start: 20160222, end: 20160313
  7. LACTATED RINGERS INFUSION [Concomitant]
     Dates: start: 20160227, end: 20160311
  8. VERSED [Concomitant]
     Active Substance: MIDAZOLAM HYDROCHLORIDE
     Dates: start: 20160227, end: 20160227
  9. ANECTINE [Concomitant]
     Active Substance: SUCCINYLCHOLINE CHLORIDE
     Dates: start: 20160301, end: 20160301
  10. BENADRYL [Concomitant]
     Active Substance: DIPHENHYDRAMINE HYDROCHLORIDE
     Dates: start: 20160223
  11. GEMTUZUMAB OZOGAMICIN [Suspect]
     Active Substance: GEMTUZUMAB OZOGAMICIN
     Indication: ACUTE MYELOID LEUKAEMIA RECURRENT
     Route: 065
     Dates: start: 20160227, end: 20160227
  12. GEMTUZUMAB OZOGAMICIN [Suspect]
     Active Substance: GEMTUZUMAB OZOGAMICIN
     Route: 065
     Dates: start: 20160227, end: 20160227
  13. GENTAK [Concomitant]
     Active Substance: GENTAMICIN SULFATE
     Dates: start: 20160308, end: 20160308
  14. VERSED [Concomitant]
     Active Substance: MIDAZOLAM HYDROCHLORIDE
     Dates: start: 20160103, end: 20160103
  15. VANCOCIN [Concomitant]
     Active Substance: VANCOMYCIN HYDROCHLORIDE
     Dates: start: 20160222, end: 20160312
  16. OXYCONTIN [Concomitant]
     Active Substance: OXYCODONE HYDROCHLORIDE
     Dates: start: 20160227, end: 20160312
  17. DIPRIVAN [Concomitant]
     Active Substance: PROPOFOL
     Dates: start: 20160301, end: 20160301
  18. MAXIPIME [Concomitant]
     Active Substance: CEFEPIME HYDROCHLORIDE
     Dates: start: 20160218
  19. KADIAN [Concomitant]
     Active Substance: MORPHINE SULFATE
     Dates: start: 20160220
  20. SODIUM CHLORIDE. [Concomitant]
     Active Substance: SODIUM CHLORIDE
     Dates: start: 20160225
  21. FLUDARABINE [Suspect]
     Active Substance: FLUDARABINE PHOSPHATE
     Indication: ACUTE MYELOID LEUKAEMIA RECURRENT
     Route: 065
     Dates: start: 20160221, end: 20160225
  22. DIPRIVAN [Concomitant]
     Active Substance: PROPOFOL
     Dates: start: 20160227, end: 20160227
  23. GRANULOCYTE COLONY STIMULATING FACTOR [Suspect]
     Active Substance: GRANULOCYTE COLONY-STIMULATING FACTOR NOS
     Indication: ACUTE MYELOID LEUKAEMIA RECURRENT
     Route: 065
     Dates: start: 20160220, end: 20160404
  24. GRANULOCYTE COLONY STIMULATING FACTOR [Suspect]
     Active Substance: GRANULOCYTE COLONY-STIMULATING FACTOR NOS
     Route: 065
     Dates: start: 20160227, end: 20160227
  25. GENTAK [Concomitant]
     Active Substance: GENTAMICIN SULFATE
     Dates: start: 20160227, end: 20160227
  26. ATIVAN [Concomitant]
     Active Substance: LORAZEPAM
     Dates: start: 20160220
  27. DEXTROSE. [Concomitant]
     Active Substance: DEXTROSE
     Dates: start: 20160218, end: 20160313
  28. CHLORHEXIDINE [Concomitant]
     Active Substance: CHLORHEXIDINE
     Dates: start: 20160220, end: 20160315
  29. BACTRIM [Concomitant]
     Active Substance: SULFAMETHOXAZOLE\TRIMETHOPRIM
     Dates: start: 20160222, end: 20160317
  30. TYLENOL [Concomitant]
     Active Substance: ACETAMINOPHEN
     Dates: start: 20160227, end: 20160227
  31. TYLENOL [Concomitant]
     Active Substance: ACETAMINOPHEN
     Dates: start: 20160228, end: 20160228
  32. VERSED [Concomitant]
     Active Substance: MIDAZOLAM HYDROCHLORIDE
     Dates: start: 20160227, end: 20160227
  33. POTASSIUM CHLORIDE. [Concomitant]
     Active Substance: POTASSIUM CHLORIDE
     Dates: start: 20160228, end: 20160228
  34. PROVENTIL [Concomitant]
     Active Substance: ALBUTEROL
     Dates: start: 20160310, end: 20160310

REACTIONS (2)
  - Sinusitis [Recovered/Resolved]
  - Epistaxis [Recovered/Resolved]

NARRATIVE: CASE EVENT DATE: 20160313
